FAERS Safety Report 10150087 (Version 2)
Quarter: 2014Q2

REPORT INFORMATION
  Report Type: Report from Study
  Country: CA (occurrence: CA)
  Receive Date: 20140502
  Receipt Date: 20140502
  Transmission Date: 20141212
  Serious: Yes (Hospitalization)
  Sender: FDA-Public Use
  Company Number: CA-CELGENEUS-028-10004-11092944

PATIENT
  Age: 41 Year
  Sex: Male
  Weight: 109.5 kg

DRUGS (7)
  1. CC-10004 [Suspect]
     Indication: PSORIASIS
     Dosage: 60 MILLIGRAM
     Route: 048
     Dates: start: 20110803, end: 20110916
  2. LANSOPRAZOLE [Concomitant]
     Indication: REFLUX GASTRITIS
     Dosage: 30 MILLIGRAM
     Route: 048
     Dates: start: 20091207
  3. LEVOTHYROXINE [Concomitant]
     Indication: HYPOTHYROIDISM
     Dosage: .075 MILLIGRAM
     Route: 048
     Dates: start: 20100325
  4. INSULIN NOVORAPID [Concomitant]
     Indication: TYPE 2 DIABETES MELLITUS
     Dosage: 96 IU (INTERNATIONAL UNIT)
     Route: 058
     Dates: start: 20100408
  5. BISOPROLOL [Concomitant]
     Indication: ARRHYTHMIA
     Dosage: 5 MILLIGRAM
     Route: 048
     Dates: start: 20110928
  6. ACETYLSALICYLIC ACID [Concomitant]
     Indication: CARDIOVASCULAR EVENT PROPHYLAXIS
     Dosage: 81 MILLIGRAM
     Route: 048
     Dates: start: 20110920
  7. HYDROCHLOROTHIAZIDE [Concomitant]
     Indication: HYPERTENSION
     Dosage: 12.5 MILLIGRAM
     Route: 048
     Dates: start: 20110917

REACTIONS (1)
  - Pneumonia [Recovered/Resolved]
